FAERS Safety Report 6863016-1 (Version None)
Quarter: 2010Q2

REPORT INFORMATION
  Report Type: 
  Country: None (occurrence: None)
  Receive Date: 20100528
  Receipt Date: 20100318
  Transmission Date: 20101027
  Serious: No
  Sender: FDA-Public Use
  Company Number: 009025

PATIENT
  Sex: Female

DRUGS (1)
  1. LACOSAMIDE [Suspect]
     Indication: EPILEPSY
     Dosage: 50 MG BID ORAL ; 3 DAYS UNTIL NOT CONTINUING
     Route: 048

REACTIONS (1)
  - DRUG DEPENDENCE [None]
